FAERS Safety Report 5034677-7 (Version None)
Quarter: 2006Q2

REPORT INFORMATION
  Report Type: 
  Country: None (occurrence: None)
  Receive Date: 20060621
  Receipt Date: 20060608
  Transmission Date: 20061013
  Serious: Yes (Other)
  Sender: FDA-Public Use
  Company Number: 14226

PATIENT
  Age: 57 Year
  Sex: Female
  Weight: 76 kg

DRUGS (1)
  1. PACLITAXEL [Suspect]
     Indication: OVARIAN CANCER
     Dosage: 740 MG FREQ IV
     Route: 042
     Dates: start: 20060418, end: 20060418

REACTIONS (6)
  - CHEST PAIN [None]
  - CIRCULATORY COLLAPSE [None]
  - DYSPNOEA [None]
  - INFUSION RELATED REACTION [None]
  - SWELLING FACE [None]
  - THANATOPHOBIA [None]
